FAERS Safety Report 6066777-7 (Version None)
Quarter: 2009Q1

REPORT INFORMATION
  Report Type: 
  Country: None (occurrence: None)
  Receive Date: 20090203
  Receipt Date: 20090116
  Transmission Date: 20090719
  Serious: Yes (Death)
  Sender: FDA-Public Use
  Company Number: 2009S1000090

PATIENT
  Age: 23 Year
  Sex: Female

DRUGS (8)
  1. ROXANOL [Suspect]
     Dates: end: 20070101
  2. METHADONE HCL [Suspect]
     Dates: end: 20070101
  3. BUPROPION HCL [Suspect]
     Dates: end: 20070101
  4. COCAINE [Suspect]
     Dates: end: 20070101
  5. BENZODIAZEPINE [Suspect]
     Dates: end: 20070101
  6. QUETIAPINE FUMARATE [Suspect]
     Dates: end: 20070101
  7. CYCLOBENZAPRINE [Suspect]
     Dates: end: 20070101
  8. MARIJUANA [Suspect]
     Dates: end: 20070101

REACTIONS (18)
  - ASPIRATION [None]
  - BODY TEMPERATURE INCREASED [None]
  - COMPLETED SUICIDE [None]
  - CONVULSION [None]
  - DELIRIUM [None]
  - DRUG TOXICITY [None]
  - ELECTROMECHANICAL DISSOCIATION [None]
  - FLUSHING [None]
  - FOREIGN BODY TRAUMA [None]
  - HEART RATE INCREASED [None]
  - HYPERHIDROSIS [None]
  - HYPERTONIA [None]
  - HYPOTENSION [None]
  - MULTIPLE DRUG OVERDOSE [None]
  - NEEDLE TRACK MARKS [None]
  - OPISTHOTONUS [None]
  - RESPIRATORY ARREST [None]
  - SKIN WARM [None]
